FAERS Safety Report 5824063-1 (Version None)
Quarter: 2008Q3

REPORT INFORMATION
  Report Type: 
  Country: None (occurrence: None)
  Receive Date: 20080728
  Receipt Date: 20080715
  Transmission Date: 20090109
  Serious: Yes (Hospitalization)
  Sender: FDA-Public Use
  Company Number: US-BAYER-200812909BCC

PATIENT
  Age: 85 Year
  Sex: Male
  Weight: 66 kg

DRUGS (4)
  1. ALEVE [Suspect]
     Indication: BACK PAIN
     Dosage: TOTAL DAILY DOSE: 220 MG  UNIT DOSE: 220 MG
     Route: 048
     Dates: start: 20080101, end: 20080101
  2. GLYBURIDE [Concomitant]
  3. LOVASTATIN [Concomitant]
  4. HYDROCHLOROTHIAZIDE [Concomitant]

REACTIONS (4)
  - FALL [None]
  - HEART RATE IRREGULAR [None]
  - PERIORBITAL HAEMATOMA [None]
  - RENAL FAILURE [None]
